FAERS Safety Report 7557907-6 (Version None)
Quarter: 2011Q2

REPORT INFORMATION
  Report Type: 
  Country: None (occurrence: None)
  Receive Date: 20110620
  Receipt Date: 20110602
  Transmission Date: 20111010
  Serious: Yes (Hospitalization, Congenital Anomaly)
  Sender: FDA-Public Use
  Company Number: A0918928A

PATIENT
  Sex: Female
  Weight: 1 kg

DRUGS (3)
  1. PAXIL [Suspect]
     Indication: DEPRESSION
     Dosage: 40MG PER DAY
     Route: 064
  2. SEROQUEL [Concomitant]
     Indication: DEPRESSION
     Route: 064
  3. MARIJUANA [Concomitant]
     Route: 064

REACTIONS (20)
  - CONDUCTION DISORDER [None]
  - PREMATURE BABY [None]
  - QRS AXIS ABNORMAL [None]
  - DIZZINESS [None]
  - ASTHMA [None]
  - DEVELOPMENTAL DELAY [None]
  - ATTENTION DEFICIT/HYPERACTIVITY DISORDER [None]
  - FLUID OVERLOAD [None]
  - PULMONARY VALVE STENOSIS CONGENITAL [None]
  - TRICUSPID VALVE INCOMPETENCE [None]
  - ATELECTASIS [None]
  - VIRAL INFECTION [None]
  - RIGHT VENTRICULAR HYPERTROPHY [None]
  - BACK PAIN [None]
  - ATRIAL SEPTAL DEFECT [None]
  - DRUG EXPOSURE DURING PREGNANCY [None]
  - APGAR SCORE LOW [None]
  - SINUS TACHYCARDIA [None]
  - ABNORMAL BEHAVIOUR [None]
  - MATERNAL DRUGS AFFECTING FOETUS [None]
